FAERS Safety Report 7687037-4 (Version None)
Quarter: 2011Q3

REPORT INFORMATION
  Report Type: 
  Country: None (occurrence: None)
  Receive Date: 20110816
  Receipt Date: 20110804
  Transmission Date: 20111222
  Serious: Yes (Hospitalization)
  Sender: FDA-Public Use
  Company Number: GB-BRISTOL-MYERS SQUIBB COMPANY-15946528

PATIENT
  Age: 34 Year
  Sex: Female

DRUGS (6)
  1. LAMIVUDINE [Interacting]
     Indication: ANTIRETROVIRAL THERAPY
     Dates: start: 20050801
  2. ZIDOVUDINE [Interacting]
     Indication: ANTIRETROVIRAL THERAPY
     Dates: start: 20050801
  3. EFAVIRENZ [Suspect]
     Indication: ANTIRETROVIRAL THERAPY
     Dates: start: 20050801
  4. IMPLANON [Interacting]
     Indication: CONTRACEPTION
     Dosage: DOSAGE FORM IS IMPLANT
     Dates: start: 20051101
  5. TENOFOVIR DISOPROXIL FUMARATE [Interacting]
     Indication: ANTIRETROVIRAL THERAPY
  6. EMTRICITABINE [Interacting]
     Indication: ANTIRETROVIRAL THERAPY

REACTIONS (4)
  - DRUG INTERACTION [None]
  - ECTOPIC PREGNANCY [None]
  - PREGNANCY WITH IMPLANT CONTRACEPTIVE [None]
  - AMENORRHOEA [None]
